FAERS Safety Report 8067974-1 (Version None)
Quarter: 2012Q1

REPORT INFORMATION
  Report Type: 
  Country: None (occurrence: None)
  Receive Date: 20120124
  Receipt Date: 20110906
  Transmission Date: 20120608
  Serious: No
  Sender: FDA-Public Use
  Company Number: US-AMGEN-USASP2011045666

PATIENT
  Age: 81 Year
  Sex: Female

DRUGS (9)
  1. LUMIGAN [Concomitant]
  2. TRAZODONE HCL [Concomitant]
  3. XANAX [Concomitant]
  4. LAMICTAL [Concomitant]
  5. LEXAPRO [Concomitant]
  6. ALTACE [Concomitant]
  7. ACIPHEX [Concomitant]
  8. PROLIA [Suspect]
     Indication: OSTEOPOROSIS POSTMENOPAUSAL
     Route: 058
     Dates: start: 20110101
  9. GLIPIZIDE [Concomitant]

REACTIONS (7)
  - SPEECH DISORDER [None]
  - MUSCULOSKELETAL STIFFNESS [None]
  - SWOLLEN TONGUE [None]
  - MALAISE [None]
  - MUSCLE SPASMS [None]
  - TENSION HEADACHE [None]
  - ARTHROPATHY [None]
